FAERS Safety Report 9368338 (Version 2)
Quarter: 2014Q2

REPORT INFORMATION
  Report Type: Spontaneous
  Country: US (occurrence: US)
  Receive Date: 20130625
  Receipt Date: 20140521
  Transmission Date: 20141212
  Serious: Yes (Death)
  Sender: FDA-Public Use
  Company Number: US-ASTELLAS-2012US012557

PATIENT
  Age: 88 Year
  Sex: Male

DRUGS (2)
  1. VESICARE [Suspect]
     Indication: NOCTURIA
     Dosage: 5 MG, DAILY
     Route: 048
     Dates: start: 20120203, end: 20140419
  2. VESICARE [Suspect]
     Indication: POLLAKIURIA

REACTIONS (2)
  - Death [Fatal]
  - Off label use [Unknown]
